FAERS Safety Report 7921170-4 (Version None)
Quarter: 2011Q4

REPORT INFORMATION
  Report Type: 
  Country: None (occurrence: None)
  Receive Date: 20111117
  Receipt Date: 20111109
  Transmission Date: 20120403
  Serious: Yes (Hospitalization)
  Sender: FDA-Public Use
  Company Number: US-BAYER-2011-028516

PATIENT
  Age: 39 Year
  Sex: Female
  Weight: 68.027 kg

DRUGS (9)
  1. TRIAMTERENE AND HYDROCHLOROTHIAZIDE [Concomitant]
     Dosage: UNK
     Dates: start: 20060819
  2. CLONAZEPAM [Concomitant]
     Dosage: 0.5 MG, UNK
     Dates: start: 20060911
  3. YASMIN [Suspect]
     Indication: CONTRACEPTION
     Dosage: UNK
     Route: 048
     Dates: start: 20060901, end: 20061001
  4. NSAID'S [Concomitant]
     Dosage: UNK UNK, PRN
  5. METHOCARBAMOL [Concomitant]
     Dosage: 750 MG, UNK
     Dates: start: 20060708
  6. TIZANIDINE HYDROCHLORIDE [Concomitant]
     Dosage: 4 MG, UNK
     Dates: start: 20060828
  7. TIZANIDINE HYDROCHLORIDE [Concomitant]
     Dosage: 4 MG, UNK
     Dates: start: 20060925
  8. CHLORZOXAZONE [Concomitant]
     Dosage: 500 MG, UNK
     Dates: start: 20060912
  9. FLUCONAZOLE [Concomitant]
     Dosage: 150 MG, UNK
     Dates: start: 20060925

REACTIONS (6)
  - MYOCARDIAL INFARCTION [None]
  - INJURY [None]
  - ANXIETY [None]
  - GENERAL PHYSICAL HEALTH DETERIORATION [None]
  - PAIN [None]
  - EMOTIONAL DISTRESS [None]
